FAERS Safety Report 5701421-7 (Version None)
Quarter: 2008Q2

REPORT INFORMATION
  Report Type: 
  Country: None (occurrence: None)
  Receive Date: 20080410
  Receipt Date: 20080409
  Transmission Date: 20081010
  Serious: Yes (Hospitalization)
  Sender: FDA-Public Use
  Company Number: FR-MERCK-0804FRA00048

PATIENT
  Age: 64 Year
  Sex: Female

DRUGS (14)
  1. ZETIA [Suspect]
     Indication: HYPERCHOLESTEROLAEMIA
     Route: 048
     Dates: start: 20070601, end: 20080201
  2. IRBESARTAN [Concomitant]
     Indication: HYPERTENSION
     Route: 048
  3. SODIUM CARBONATE [Concomitant]
     Route: 048
  4. INSULIN [Concomitant]
     Indication: DIABETES MELLITUS
     Route: 051
  5. ORLISTAT [Concomitant]
     Indication: OBESITY
     Route: 048
  6. PANTOPRAZOLE SODIUM [Concomitant]
     Route: 048
  7. DILTIAZEM HYDROCHLORIDE [Concomitant]
     Indication: HYPERTENSION
     Route: 048
  8. RILMENIDINE PHOSPHATE [Concomitant]
     Indication: HYPERTENSION
     Route: 048
  9. CLOPIDOGREL BISULFATE [Concomitant]
     Indication: PROPHYLAXIS
     Route: 048
  10. BROMAZEPAM [Concomitant]
     Route: 048
  11. ATORVASTATIN CALCIUM [Concomitant]
     Indication: HYPERCHOLESTEROLAEMIA
     Route: 048
  12. LATANOPROST AND TIMOLOL MALEATE [Concomitant]
     Indication: GLAUCOMA
     Route: 047
  13. BRINZOLAMIDE [Concomitant]
     Indication: GLAUCOMA
     Route: 047
  14. NITROGLYCERIN [Concomitant]
     Route: 065

REACTIONS (1)
  - RENAL FAILURE ACUTE [None]
